FAERS Safety Report 24639743 (Version 2)
Quarter: 2024Q4

REPORT INFORMATION
  Report Type: Report from Study
  Country: GB (occurrence: GB)
  Receive Date: 20241119
  Receipt Date: 20241120
  Transmission Date: 20250115
  Serious: Yes (Congenital Anomaly, Other)
  Sender: ABBVIE
  Company Number: GB-ABBVIE-6006984

PATIENT
  Sex: Female

DRUGS (8)
  1. NORVIR [Suspect]
     Active Substance: RITONAVIR
     Indication: Maternal exposure timing unspecified
     Route: 064
  2. NORVIR [Suspect]
     Active Substance: RITONAVIR
     Indication: Maternal exposure timing unspecified
     Route: 064
  3. ZIDOVUDINE [Suspect]
     Active Substance: ZIDOVUDINE
     Indication: Maternal exposure timing unspecified
     Route: 064
  4. TRUVADA [Suspect]
     Active Substance: EMTRICITABINE\TENOFOVIR DISOPROXIL FUMARATE
     Indication: Maternal exposure timing unspecified
     Route: 064
  5. APTIVUS [Suspect]
     Active Substance: TIPRANAVIR
     Indication: Maternal exposure timing unspecified
     Route: 064
  6. PREZISTA [Suspect]
     Active Substance: DARUNAVIR ETHANOLATE
     Indication: Maternal exposure timing unspecified
     Route: 064
  7. ISENTRESS [Suspect]
     Active Substance: RALTEGRAVIR POTASSIUM
     Indication: Maternal exposure timing unspecified
     Route: 064
  8. INTELENCE [Suspect]
     Active Substance: ETRAVIRINE
     Indication: Maternal exposure timing unspecified
     Route: 064

REACTIONS (25)
  - Genitalia external ambiguous [Unknown]
  - Blood iron decreased [Unknown]
  - Meconium stain [Unknown]
  - Congenital musculoskeletal disorder of spine [Unknown]
  - Cloacal exstrophy [Unknown]
  - Tethered cord syndrome [Unknown]
  - Gastrointestinal malformation [Unknown]
  - Bladder agenesis [Unknown]
  - Spina bifida [Unknown]
  - Neural tube defect [Unknown]
  - Exomphalos [Unknown]
  - Unevaluable event [Unknown]
  - Congenital musculoskeletal disorder [Recovered/Resolved]
  - Gastrointestinal disorder congenital [Unknown]
  - Erythema [Unknown]
  - Caudal regression syndrome [Unknown]
  - Lipodystrophy acquired [Unknown]
  - Anal atresia [Unknown]
  - Congenital genital malformation [Unknown]
  - Umbilical cord abnormality [Unknown]
  - Meningomyelocele [Unknown]
  - Sepsis [Unknown]
  - Musculoskeletal discomfort [Unknown]
  - Foetal exposure during pregnancy [Unknown]
  - Premature baby [Unknown]
